FAERS Safety Report 8743914 (Version 2)
Quarter: 2012Q4

REPORT INFORMATION
  Report Type: 
  Country: DE (occurrence: DE)
  Receive Date: 20120824
  Receipt Date: 20121029
  Transmission Date: 20130627
  Serious: Yes (Life-Threatening)
  Sender: FDA-Public Use
  Company Number: DE-B.I. PHARMACEUTICALS,INC./RIDGEFIELD-2012-DE-01991DE

PATIENT
  Age: 76 Year
  Sex: Female
  Weight: 50 kg

DRUGS (2)
  1. AGGRENOX [Suspect]
     Dosage: 2 anz
  2. TOLPERISON HEXAL [Concomitant]
     Indication: MUSCLE SPASMS
     Dosage: 150 mg
     Route: 048
     Dates: start: 20120101, end: 20120102

REACTIONS (7)
  - Oedema mucosal [Recovered/Resolved]
  - Oedema peripheral [Recovered/Resolved]
  - Paraesthesia [Recovered/Resolved]
  - Paraesthesia mucosal [Recovered/Resolved]
  - Pruritus [Recovered/Resolved]
  - Respiratory distress [Recovered/Resolved]
  - Oral pruritus [Recovered/Resolved]
